FAERS Safety Report 8577160-4 (Version None)
Quarter: 2012Q3

REPORT INFORMATION
  Report Type: 
  Country: None (occurrence: None)
  Receive Date: 20120807
  Receipt Date: 20120802
  Transmission Date: 20120928
  Serious: No
  Sender: FDA-Public Use
  Company Number: US-TEVA-352111USA

PATIENT
  Age: 47 Year
  Sex: Female
  Weight: 65.83 kg

DRUGS (3)
  1. TRAMADOL HCL [Concomitant]
     Dosage: HIGH DOSES QHS
     Route: 048
  2. NUVIGIL [Suspect]
     Indication: NARCOLEPSY
     Dosage: 150 MILLIGRAM DAILY;
     Route: 048
     Dates: start: 20120701
  3. MIRAPEX [Concomitant]
     Dosage: HIGH DOSES QHS
     Route: 048

REACTIONS (1)
  - CYST [None]
